FAERS Safety Report 5403561-9 (Version None)
Quarter: 2007Q3

REPORT INFORMATION
  Report Type: 
  Country: None (occurrence: None)
  Receive Date: 20070730
  Receipt Date: 20070724
  Transmission Date: 20080115
  Serious: Yes (Hospitalization)
  Sender: FDA-Public Use
  Company Number: SPV1-2007-03654

PATIENT
  Age: 46 Year
  Sex: Male

DRUGS (14)
  1. FOSRENOL [Suspect]
     Indication: HYPERPHOSPHATAEMIA
     Dosage: 1 G, 3X/DAY:TID, ORAL
     Route: 048
     Dates: start: 20070504, end: 20070618
  2. ERYTHROMYCIN [Suspect]
     Indication: LOWER RESPIRATORY TRACT INFECTION
     Dosage: 250 MG, 4X/DAY;QID, ORAL
     Route: 048
     Dates: start: 20070613, end: 20070618
  3. ALFACALCIDOL(ALFACALCIDOL) [Concomitant]
  4. ALUMINUM (ALUMINIUM) [Concomitant]
  5. AMOXICILLIN [Concomitant]
  6. ARANESP [Concomitant]
  7. ATORVASTATIN CALCIUM [Concomitant]
  8. BUMETANIDE [Concomitant]
  9. EZETIMIBE [Concomitant]
  10. LANSOPRAZOLE [Concomitant]
  11. METOLAZONE [Concomitant]
  12. NOVOMIX /01475801/ (INSULIN ASPART) [Concomitant]
  13. PREGABALIN (PREGABALIN) [Concomitant]
  14. WARFARIN SODIUM [Concomitant]

REACTIONS (4)
  - ALANINE AMINOTRANSFERASE INCREASED [None]
  - ASPARTATE AMINOTRANSFERASE INCREASED [None]
  - CARDIAC FAILURE CONGESTIVE [None]
  - HAEMOGLOBIN DECREASED [None]
